FAERS Safety Report 9415584 (Version 1)
Quarter: 2013Q3

REPORT INFORMATION
  Report Type: Spontaneous
  Country: US (occurrence: US)
  Receive Date: 20130723
  Receipt Date: 20130723
  Transmission Date: 20140515
  Serious: Yes (Death, Other)
  Sender: FDA-Public Use
  Company Number: US-PFIZER INC-2013210597

PATIENT
  Age: 39 Year
  Sex: Male

DRUGS (1)
  1. LEVOTHYROXINE SODIUM [Suspect]
     Dosage: UNK

REACTIONS (9)
  - Sudden death [Fatal]
  - Ventricular fibrillation [Fatal]
  - Hyperthyroidism [Unknown]
  - Cardiac failure congestive [Unknown]
  - Dyspnoea [Unknown]
  - Atrial fibrillation [Unknown]
  - Myocarditis [Unknown]
  - Tremor [Unknown]
  - Feeling jittery [Unknown]
